FAERS Safety Report 23897819 (Version 1)
Quarter: 2024Q2

REPORT INFORMATION
  Report Type: Report from Study
  Country: ES (occurrence: ES)
  Receive Date: 20240524
  Receipt Date: 20240524
  Transmission Date: 20240716
  Serious: Yes (Other)
  Sender: FDA-Public Use
  Company Number: ES-TEVA-VS-3154142

PATIENT
  Age: 65 Year
  Sex: Female

DRUGS (4)
  1. TERIPARATIDE [Suspect]
     Active Substance: TERIPARATIDE
     Indication: Osteoporosis
     Dosage: FORM STRENGTH:  20MCG/80MCL
     Route: 065
     Dates: start: 20231204, end: 20240513
  2. Eutirox 100 [Concomitant]
     Indication: Hypothyroidism
     Dosage: DOSAGE: 1-0-0; START DATE: LONG TIME AGO; END DATE: CONTINUED
  3. CALCIUM CARBONATE [Concomitant]
     Active Substance: CALCIUM CARBONATE
     Indication: Osteoporosis
     Dosage: DOSAGE: 1/24H; START DATE: LONG TIME AGO; END DATE: CONTINUED
  4. CALCIFEDIOL [Concomitant]
     Active Substance: CALCIFEDIOL
     Indication: Osteoporosis
     Dosage: DOSAGE: 1/30 DAYS; START DATE: LONG TIME AGO; END DATE: CONTINUED

REACTIONS (12)
  - Pyrexia [Recovered/Resolved]
  - Nausea [Recovered/Resolved]
  - Chills [Unknown]
  - Muscle spasms [Recovered/Resolved]
  - Myalgia [Recovered/Resolved]
  - Pain in extremity [Not Recovered/Not Resolved]
  - Night sweats [Recovered/Resolved]
  - Pain in jaw [Recovered/Resolved]
  - Tremor [Recovered/Resolved]
  - Malaise [Unknown]
  - Muscle spasms [Recovered/Resolved]
  - Nasopharyngitis [Recovered/Resolved]

NARRATIVE: CASE EVENT DATE: 20231204
